FAERS Safety Report 7241303-5 (Version None)
Quarter: 2011Q1

REPORT INFORMATION
  Report Type: 
  Country: None (occurrence: None)
  Receive Date: 20110124
  Receipt Date: 20110117
  Transmission Date: 20110831
  Serious: Yes (Life-Threatening, Hospitalization, Other)
  Sender: FDA-Public Use
  Company Number: D0069966A

PATIENT
  Age: 78 Year
  Sex: Female
  Weight: 90 kg

DRUGS (4)
  1. DIOVAN [Suspect]
     Dosage: 80MG PER DAY
     Route: 048
     Dates: start: 20101019, end: 20101022
  2. MULTIPLE MEDICATIONS [Concomitant]
     Route: 065
  3. CEFUHEXAL [Suspect]
     Dosage: 500MG TWICE PER DAY
     Route: 048
     Dates: start: 20101019, end: 20101021
  4. IOPROMIDE [Suspect]
     Indication: ARTERIOGRAM CORONARY
     Dosage: 250ML SINGLE DOSE
     Route: 042
     Dates: start: 20101020, end: 20101020

REACTIONS (1)
  - RENAL FAILURE ACUTE [None]
